FAERS Safety Report 25736024 (Version 1)
Quarter: 2025Q3

REPORT INFORMATION
  Report Type: Spontaneous
  Country: US (occurrence: None)
  Receive Date: 20250828
  Receipt Date: 20250828
  Transmission Date: 20251020
  Serious: Yes (Death)
  Sender: FDA-CTU
  Company Number: None

PATIENT
  Sex: Male

DRUGS (12)
  1. TEMOZOLOMIDE [Suspect]
     Active Substance: TEMOZOLOMIDE
     Indication: Brain neoplasm malignant
     Route: 048
     Dates: start: 20240319
  2. ASPIRIN [Concomitant]
     Active Substance: ASPIRIN
  3. BACLOFEN [Concomitant]
     Active Substance: BACLOFEN
  4. BACTRIM DS [Concomitant]
     Active Substance: SULFAMETHOXAZOLE\TRIMETHOPRIM
  5. DEXAMETHASON TAB 2MG [Concomitant]
  6. DEXAMETHASON TAB 2MG [Concomitant]
  7. FLUOCIN ACET SOL 0.01% [Concomitant]
  8. LORAZEPAM TAB 0.5MG [Concomitant]
  9. METHYLPHENID TAB 5MG [Concomitant]
  10. ONDANSETRON TAB SMG ODT [Concomitant]
  11. PREDNISONE TAB 50MG [Concomitant]
  12. PROCHLORPER TAB 5MG [Concomitant]

REACTIONS (1)
  - Death [None]
